FAERS Safety Report 10266137 (Version 1)
Quarter: 2014Q2

REPORT INFORMATION
  Report Type: Spontaneous
  Country: PH (occurrence: PH)
  Receive Date: 20140627
  Receipt Date: 20140627
  Transmission Date: 20141212
  Serious: Yes (Death, Other)
  Sender: FDA-Public Use
  Company Number: PH-009507513-1406PHL011440

PATIENT
  Age: 35 Year
  Sex: Female

DRUGS (1)
  1. JANUMET [Suspect]
     Indication: DIABETES MELLITUS
     Dosage: ONE TABLET, TWICE A DAY
     Route: 048
     Dates: start: 201405

REACTIONS (1)
  - Organ failure [Fatal]
